FAERS Safety Report 9416988 (Version 2)
Quarter: 2013Q4

REPORT INFORMATION
  Report Type: Spontaneous
  Country: PL (occurrence: PL)
  Receive Date: 20130719
  Receipt Date: 20131119
  Transmission Date: 20140711
  Serious: Yes (Other)
  Sender: FDA-Public Use
  Company Number: AUR-APL-2013-06074

PATIENT
  Age: 83 Year
  Sex: Female

DRUGS (2)
  1. AMOXICILLIN+CLAVULANIC ACID [Suspect]
     Indication: PRODUCT USED FOR UNKNOWN INDICATION
  2. CIPROFLOXACIN (CIPROFLOXACIN) [Suspect]
     Indication: PRODUCT USED FOR UNKNOWN INDICATION

REACTIONS (2)
  - Clostridium difficile infection [None]
  - Nosocomial infection [None]
